FAERS Safety Report 4599565-9 (Version None)
Quarter: 2005Q1

REPORT INFORMATION
  Report Type: 
  Country: None (occurrence: None)
  Receive Date: 20050303
  Receipt Date: 20050218
  Transmission Date: 20050727
  Serious: Yes (Hospitalization)
  Sender: FDA-Public Use
  Company Number: HQWYE465022FEB05

PATIENT
  Sex: Female
  Weight: 3.39 kg

DRUGS (3)
  1. EFFEXOR XR [Suspect]
     Indication: DEPRESSIVE SYMPTOM
     Dosage: TRANSPLACENTAL; SEE IMAGE
     Route: 064
     Dates: end: 20040701
  2. EFFEXOR XR [Suspect]
     Indication: DEPRESSIVE SYMPTOM
     Dosage: TRANSPLACENTAL; SEE IMAGE
     Route: 064
     Dates: start: 20041101
  3. KEFLEX [Concomitant]

REACTIONS (6)
  - DRUG EXPOSURE DURING PREGNANCY [None]
  - DRUG WITHDRAWAL SYNDROME NEONATAL [None]
  - FEEDING PROBLEM IN NEWBORN [None]
  - MECONIUM IN AMNIOTIC FLUID [None]
  - NEONATAL RESPIRATORY DISTRESS SYNDROME [None]
  - PULMONARY OEDEMA NEONATAL [None]
